FAERS Safety Report 19272801 (Version 1)
Quarter: 2021Q2

REPORT INFORMATION
  Report Type: Spontaneous
  Country: US (occurrence: US)
  Receive Date: 20210518
  Receipt Date: 20210518
  Transmission Date: 20210717
  Serious: Yes (Death)
  Sender: FDA-Public Use
  Company Number: US-FRESENIUS KABI-FK202105034

PATIENT
  Age: 60 Year
  Sex: Male

DRUGS (1)
  1. PHENYLEPHRINE HYDROCHLORIDE INJECTION (MANUFACTURER UNKNOWN) [Suspect]
     Active Substance: PHENYLEPHRINE HYDROCHLORIDE
     Indication: ARRHYTHMIA PROPHYLAXIS
     Route: 065

REACTIONS (2)
  - Acute respiratory distress syndrome [Fatal]
  - Pulmonary oedema [Fatal]
